FAERS Safety Report 9879394 (Version 1)
Quarter: 2014Q1

REPORT INFORMATION
  Report Type: Spontaneous
  Country: AU (occurrence: AU)
  Receive Date: 20140206
  Receipt Date: 20140206
  Transmission Date: 20141002
  Serious: Yes (Hospitalization)
  Sender: FDA-Public Use
  Company Number: AU-009507513-1401AUS014647

PATIENT
  Sex: Female

DRUGS (1)
  1. TEMODAL [Suspect]
     Dosage: UNK
     Route: 048

REACTIONS (2)
  - Escherichia sepsis [Unknown]
  - Urosepsis [Unknown]
